FAERS Safety Report 7111553-7 (Version None)
Quarter: 2010Q4

REPORT INFORMATION
  Report Type: 
  Country: None (occurrence: None)
  Receive Date: 20101118
  Receipt Date: 20100706
  Transmission Date: 20110411
  Serious: Yes (Other)
  Sender: FDA-Public Use
  Company Number: US-PFIZER INC-2010084325

PATIENT
  Sex: Female

DRUGS (2)
  1. ZYVOX [Suspect]
     Indication: NOCARDIOSIS
     Dosage: 600 MG, 2X/DAY
     Route: 048
     Dates: start: 20090801, end: 20090101
  2. BACTRIM [Concomitant]
     Indication: NOCARDIOSIS
     Dosage: UNK
     Route: 048

REACTIONS (1)
  - NEUROPATHY PERIPHERAL [None]
